FAERS Safety Report 9263656 (Version 1)
Quarter: 2013Q2

REPORT INFORMATION
  Report Type: Spontaneous
  Country: US (occurrence: US)
  Receive Date: 20130430
  Receipt Date: 20130430
  Transmission Date: 20140414
  Serious: No
  Sender: FDA-Public Use
  Company Number: US-COVIDIEN/TYCO HEALTHCARE/MALLINCKRODT-T201203510

PATIENT
  Age: 21 Year
  Sex: Female
  Weight: 82.8 kg

DRUGS (3)
  1. CYSTO-CONRAY II [Suspect]
     Indication: UROGRAM
     Dosage: 120 ML, SINGLE
     Route: 042
     Dates: start: 20120921, end: 20120921
  2. ACETAMINOPHEN [Concomitant]
  3. PHENERGAN                          /00033001/ [Concomitant]

REACTIONS (1)
  - Incorrect route of drug administration [Unknown]
